FAERS Safety Report 18195253 (Version 1)
Quarter: 2020Q3

REPORT INFORMATION
  Report Type: Spontaneous
  Country: IN (occurrence: IN)
  Receive Date: 20200825
  Receipt Date: 20200825
  Transmission Date: 20201103
  Serious: Yes (Other)
  Sender: FDA-Public Use
  Company Number: IN-AMERICAN REGENT INC-2020001716

PATIENT
  Sex: Female

DRUGS (1)
  1. FERINJECT [Suspect]
     Active Substance: FERRIC CARBOXYMALTOSE
     Indication: ANAEMIA OF PREGNANCY
     Dosage: 1000 MILLIGRAM, 1 IN 1 WK

REACTIONS (2)
  - Anaphylactic reaction [Unknown]
  - Maternal exposure during pregnancy [Unknown]
